FAERS Safety Report 8323222-6 (Version None)
Quarter: 2012Q2

REPORT INFORMATION
  Report Type: 
  Country: None (occurrence: None)
  Receive Date: 20120430
  Receipt Date: 20120423
  Transmission Date: 20120825
  Serious: Yes (Hospitalization)
  Sender: FDA-Public Use
  Company Number: LB-ABBOTT-12P-093-0929383-00

PATIENT
  Age: 50 Year
  Sex: Female

DRUGS (2)
  1. LAMOTRIGINE [Concomitant]
     Indication: PRODUCT USED FOR UNKNOWN INDICATION
     Dates: start: 20120318
  2. DEPAKENE [Suspect]
     Indication: CONVULSION
     Route: 042
     Dates: start: 20120315, end: 20120320

REACTIONS (2)
  - ENCEPHALOPATHY [None]
  - LOSS OF CONSCIOUSNESS [None]
